FAERS Safety Report 8141913-7 (Version None)
Quarter: 2012Q1

REPORT INFORMATION
  Report Type: 
  Country: None (occurrence: None)
  Receive Date: 20120216
  Receipt Date: 20120210
  Transmission Date: 20120608
  Serious: Yes (Congenital Anomaly)
  Sender: FDA-Public Use
  Company Number: US-GLAXOSMITHKLINE-A0963969A

PATIENT
  Sex: Male

DRUGS (3)
  1. VITAMIN AND MINERAL PRENATAL SUPPLEMENT W/ FOLIC ACID CAP [Concomitant]
  2. PAXIL [Suspect]
     Indication: PRODUCT USED FOR UNKNOWN INDICATION
     Dosage: 10MG PER DAY
     Route: 064
  3. IRON [Concomitant]

REACTIONS (6)
  - NEURAL TUBE DEFECT [None]
  - INTRACRANIAL HYPOTENSION [None]
  - LIPOMENINGOCELE [None]
  - FOOT DEFORMITY [None]
  - TETHERED CORD SYNDROME [None]
  - FOETAL EXPOSURE DURING PREGNANCY [None]
